FAERS Safety Report 15315826 (Version 1)
Quarter: 2018Q3

REPORT INFORMATION
  Report Type: Report from Study
  Country: ZA (occurrence: ZA)
  Receive Date: 20180824
  Receipt Date: 20180824
  Transmission Date: 20181010
  Serious: Yes (Hospitalization)
  Sender: FDA-Public Use
  Company Number: PHHY2018ZA077970

PATIENT
  Sex: Female

DRUGS (1)
  1. EXFORGE [Suspect]
     Active Substance: AMLODIPINE BESYLATE\VALSARTAN
     Indication: HYPERTENSION
     Dosage: (AMLODIPINE 5 MG, VALSARTAN 160 MG)
     Route: 048

REACTIONS (6)
  - Lower limb fracture [Unknown]
  - Haemorrhage [Unknown]
  - Ankle fracture [Unknown]
  - Pneumonia [Unknown]
  - Respiratory failure [Unknown]
  - Peripheral swelling [Unknown]
